FAERS Safety Report 5685051-1 (Version None)
Quarter: 2008Q1

REPORT INFORMATION
  Report Type: 
  Country: None (occurrence: None)
  Receive Date: 20080328
  Receipt Date: 19991006
  Transmission Date: 20080703
  Serious: Yes (Death)
  Sender: FDA-Public Use
  Company Number: DE-ROCHE-217238

PATIENT
  Age: 55 Year
  Sex: Male

DRUGS (3)
  1. XENICAL [Suspect]
     Indication: OBESITY
     Route: 048
     Dates: start: 19990112, end: 19990309
  2. URGENIN [Concomitant]
     Indication: DYSURIA
     Route: 048
     Dates: start: 19980423, end: 19990309
  3. SAROTEN 25 [Concomitant]
     Indication: DEPRESSION
     Route: 048
     Dates: start: 19940101, end: 19990310

REACTIONS (1)
  - MYOCARDIAL INFARCTION [None]
